FAERS Safety Report 7421287-7 (Version None)
Quarter: 2011Q2

REPORT INFORMATION
  Report Type: 
  Country: None (occurrence: None)
  Receive Date: 20110418
  Receipt Date: 20110412
  Transmission Date: 20111010
  Serious: Yes (Disabling)
  Sender: FDA-Public Use
  Company Number: GB-MERCK-1104GBR00001

PATIENT
  Age: 60 Year
  Sex: Male
  Weight: 81 kg

DRUGS (15)
  1. ACETAMINOPHEN AND CODEINE PHOSPHATE [Concomitant]
     Route: 065
     Dates: start: 20101229, end: 20110315
  2. GABAPENTIN [Concomitant]
     Route: 065
     Dates: start: 20101229, end: 20110315
  3. NICORANDIL [Concomitant]
     Route: 065
     Dates: start: 20101229
  4. PIZOTYLINE [Concomitant]
     Route: 065
     Dates: start: 20101215, end: 20110126
  5. ASPIRIN [Concomitant]
     Route: 065
     Dates: start: 20101229
  6. ISOSORBIDE MONONITRATE [Concomitant]
     Route: 065
  7. ESOMEPRAZOLE [Concomitant]
     Route: 065
     Dates: start: 20101215
  8. LOSARTAN POTASSIUM [Concomitant]
     Route: 048
     Dates: start: 20101229
  9. DILTIAZEM HYDROCHLORIDE [Concomitant]
     Route: 065
     Dates: start: 20110107
  10. BETAHISTINE [Concomitant]
     Route: 065
     Dates: start: 20110222
  11. SIMVASTATIN [Concomitant]
     Route: 048
     Dates: start: 20101229
  12. ZETIA [Suspect]
     Route: 048
  13. BENDROFLUMETHIAZIDE [Concomitant]
     Route: 065
     Dates: start: 20101229
  14. DOMPERIDONE [Concomitant]
     Route: 065
     Dates: start: 20101229
  15. MUCOPOLYSACCHARIDE POLYSULFATE AND SALICYLIC ACID [Concomitant]
     Route: 065
     Dates: start: 20110107

REACTIONS (6)
  - BURNING SENSATION [None]
  - ABDOMINAL PAIN [None]
  - NAUSEA [None]
  - TREMOR [None]
  - DIARRHOEA [None]
  - FLUSHING [None]
